FAERS Safety Report 5327824-0 (Version None)
Quarter: 2007Q2

REPORT INFORMATION
  Report Type: 
  Country: None (occurrence: None)
  Receive Date: 20070517
  Receipt Date: 20070509
  Transmission Date: 20071010
  Serious: Yes (Other)
  Sender: FDA-Public Use
  Company Number: US-JNJFOC-20070502351

PATIENT
  Sex: Female
  Weight: 108.86 kg

DRUGS (5)
  1. TOPAMAX [Suspect]
     Indication: MIGRAINE
     Route: 048
  2. TOPAMAX [Suspect]
     Indication: CONVULSION
     Route: 048
  3. KEPPRA [Suspect]
     Indication: GRAND MAL CONVULSION
     Dosage: 1 DOSE
  4. BACTRIM [Concomitant]
     Indication: URINARY TRACT INFECTION
     Route: 048
  5. TRAMADOL HCL [Concomitant]
     Indication: BACK PAIN
     Route: 048

REACTIONS (8)
  - ABDOMINAL PAIN [None]
  - ANAPHYLACTOID REACTION [None]
  - ANHIDROSIS [None]
  - BODY TEMPERATURE INCREASED [None]
  - CONFUSIONAL STATE [None]
  - CONSTIPATION [None]
  - DIZZINESS [None]
  - GRAND MAL CONVULSION [None]
